FAERS Safety Report 6959053-9 (Version None)
Quarter: 2010Q3

REPORT INFORMATION
  Report Type: 
  Country: None (occurrence: None)
  Receive Date: 20100826
  Receipt Date: 20100817
  Transmission Date: 20110219
  Serious: Yes (Other)
  Sender: FDA-Public Use
  Company Number: 2010SP038933

PATIENT
  Age: 30 Year
  Sex: Female

DRUGS (4)
  1. IMPLANON [Suspect]
     Indication: CONTRACEPTION
     Dosage: 1 DF; SBDE
     Route: 059
     Dates: start: 20100201, end: 20100517
  2. FLONASE [Concomitant]
  3. CLARITIN [Concomitant]
  4. IBUPROFEN [Concomitant]

REACTIONS (3)
  - DIZZINESS [None]
  - HALLUCINATION [None]
  - HEADACHE [None]
